FAERS Safety Report 5931771-0 (Version None)
Quarter: 2008Q4

REPORT INFORMATION
  Report Type: 
  Country: None (occurrence: None)
  Receive Date: 20081027
  Receipt Date: 20081015
  Transmission Date: 20090506
  Serious: Yes (Life-Threatening)
  Sender: FDA-Public Use
  Company Number: FR-PFIZER INC-2008087467

PATIENT
  Sex: Male

DRUGS (5)
  1. ADRIBLASTINE [Suspect]
     Indication: ACUTE LYMPHOCYTIC LEUKAEMIA
     Route: 042
     Dates: start: 20080818, end: 20080825
  2. KIDROLASE [Suspect]
     Indication: ACUTE LYMPHOCYTIC LEUKAEMIA
     Route: 042
     Dates: start: 20080314, end: 20080825
  3. DECTANCYL [Suspect]
     Indication: ACUTE LYMPHOCYTIC LEUKAEMIA
     Route: 048
     Dates: start: 20080811, end: 20080831
  4. BACTRIM [Suspect]
     Indication: INFECTION PROPHYLAXIS
     Route: 048
  5. ONCOVIN [Suspect]
     Indication: ACUTE LYMPHOCYTIC LEUKAEMIA
     Route: 042
     Dates: start: 20080310

REACTIONS (4)
  - BONE MARROW FAILURE [None]
  - PANCREATITIS ACUTE [None]
  - SEPTIC SHOCK [None]
  - TYPE 1 DIABETES MELLITUS [None]
